FAERS Safety Report 8399481-0 (Version None)
Quarter: 2012Q2

REPORT INFORMATION
  Report Type: 
  Country: None (occurrence: None)
  Receive Date: 20120531
  Receipt Date: 20120523
  Transmission Date: 20120825
  Serious: Yes (Hospitalization)
  Sender: FDA-Public Use
  Company Number: GB-B.I. PHARMACEUTICALS,INC./RIDGEFIELD-2012-UK-00588UK

PATIENT
  Age: 51 Year
  Sex: Male
  Weight: 75 kg

DRUGS (8)
  1. LEUPROLIDE ACETATE [Concomitant]
     Indication: PROSTATE CANCER
     Route: 030
     Dates: start: 20120101
  2. PROPONALOL [Concomitant]
     Indication: ANXIETY
     Dosage: 40 MG
     Route: 048
     Dates: start: 20120401
  3. NEVIRAPINE [Suspect]
     Indication: HIV INFECTION
     Dosage: 400 MG
     Route: 048
     Dates: start: 20120403
  4. DIAZEPAM [Concomitant]
     Indication: ANXIETY
     Dosage: 5 MG
     Route: 048
     Dates: start: 20120401
  5. ZOLADEX [Concomitant]
     Indication: PROSTATE CANCER
  6. FLUOXETINE [Concomitant]
     Indication: DEPRESSION
     Dosage: 20 MG
     Route: 048
     Dates: start: 20120401
  7. ABACAVIR SULFATE/LAMIVUDINE [Concomitant]
  8. DICLOFENAC [Concomitant]

REACTIONS (4)
  - ASPARTATE AMINOTRANSFERASE INCREASED [None]
  - LIVER FUNCTION TEST ABNORMAL [None]
  - CONFUSIONAL STATE [None]
  - PALPITATIONS [None]
